FAERS Safety Report 10353274 (Version 4)
Quarter: 2014Q3

REPORT INFORMATION
  Report Type: Spontaneous
  Country: JP (occurrence: JP)
  Receive Date: 20140730
  Receipt Date: 20140827
  Transmission Date: 20150326
  Serious: Yes (Other)
  Sender: FDA-Public Use
  Company Number: JP-ROCHE-1442430

PATIENT
  Age: 60 Year
  Sex: Female

DRUGS (7)
  1. AVASTIN [Suspect]
     Active Substance: BEVACIZUMAB
     Indication: COLON CANCER METASTATIC
     Dosage: DOSAGE IS UNCERTAIN. ?ADMINISTRATION PERIOD: FOUR COURSES
     Route: 041
  2. LEVOFOLINATE [Suspect]
     Active Substance: LEVOLEUCOVORIN CALCIUM
     Indication: COLON CANCER METASTATIC
     Dosage: DOSAGE IS UNCERTAIN. ?ADMINISTRATION PERIOD: FOUR COURSES
     Route: 041
  3. XELODA [Suspect]
     Active Substance: CAPECITABINE
     Indication: COLON CANCER METASTATIC
     Dosage: DOSAGE IS UNCERTAIN. ?ADMINISTRATION PERIOD: FOUR COURSES
     Route: 048
  4. ELPLAT [Suspect]
     Active Substance: OXALIPLATIN
     Indication: COLON CANCER
     Route: 041
  5. 5-FU [Suspect]
     Active Substance: FLUOROURACIL
     Indication: COLON CANCER METASTATIC
     Dosage: DOSAGE IS UNCERTAIN. ?ADMINISTRATION PERIOD: FOUR COURSES
     Route: 040
  6. IRINOTECAN HYDROCHLORIDE TRIHYDRATE [Suspect]
     Active Substance: IRINOTECAN HYDROCHLORIDE
     Indication: COLON CANCER METASTATIC
     Dosage: DOSAGE IS UNCERTAIN. ?ADMINISTRATION PERIOD: FOUR COURSES
     Route: 041
  7. 5-FU [Suspect]
     Active Substance: FLUOROURACIL
     Indication: COLON CANCER METASTATIC
     Dosage: DOSAGE IS UNCERTAIN. ?ADMINISTRATION PERIOD: FOUR COURSES
     Route: 041

REACTIONS (6)
  - Hepatic atrophy [Recovered/Resolved]
  - Varices oesophageal [Recovered/Resolved]
  - Ascites [Recovering/Resolving]
  - Hepatocellular injury [Recovered/Resolved]
  - Splenomegaly [Recovered/Resolved]
  - Pancytopenia [Recovering/Resolving]
